FAERS Safety Report 20974822 (Version 1)
Quarter: 2022Q2

REPORT INFORMATION
  Report Type: Spontaneous
  Country: US (occurrence: US)
  Receive Date: 20220617
  Receipt Date: 20220617
  Transmission Date: 20220721
  Serious: Yes (Other)
  Sender: FDA-Public Use
  Company Number: US-Shilpa Medicare Limited-SML-US-2022-00664

PATIENT
  Age: 1 Year
  Sex: Female

DRUGS (6)
  1. ZOLEDRONIC ACID [Suspect]
     Active Substance: ZOLEDRONIC ACID
     Indication: Gorham^s disease
     Route: 065
     Dates: end: 2016
  2. ZOLEDRONIC ACID [Suspect]
     Active Substance: ZOLEDRONIC ACID
     Route: 065
  3. SIROLIMUS [Suspect]
     Active Substance: SIROLIMUS
     Indication: Gorham^s disease
     Route: 065
     Dates: start: 2014
  4. PAMIDRONATE [Suspect]
     Active Substance: PAMIDRONATE DISODIUM
     Indication: Gorham^s disease
     Route: 065
     Dates: start: 2014
  5. VINCRISTINE [Suspect]
     Active Substance: VINCRISTINE
     Indication: Gorham^s disease
     Route: 065
     Dates: end: 2016
  6. VINCRISTINE [Suspect]
     Active Substance: VINCRISTINE
     Dates: end: 2016

REACTIONS (3)
  - Blood parathyroid hormone increased [Unknown]
  - Mucosal inflammation [Recovered/Resolved]
  - Hypertriglyceridaemia [Recovered/Resolved]
